FAERS Safety Report 12181890 (Version 2)
Quarter: 2018Q3

REPORT INFORMATION
  Report Type: Spontaneous
  Country: DK (occurrence: DK)
  Receive Date: 20160315
  Receipt Date: 20180920
  Transmission Date: 20181010
  Serious: Yes (Other)
  Sender: FDA-Public Use
  Company Number: DK-ASTRAZENECA-2016SE25914

PATIENT
  Age: 593 Month
  Sex: Female

DRUGS (7)
  1. RISPERDAL [Suspect]
     Active Substance: RISPERIDONE
     Indication: BIPOLAR DISORDER
     Dosage: 2?4 MG
     Route: 048
     Dates: start: 20130107, end: 20130403
  2. SEROQUEL XR [Suspect]
     Active Substance: QUETIAPINE FUMARATE
     Indication: DEPRESSION
     Route: 048
  3. LITAREX [Suspect]
     Active Substance: LITHIUM CITRATE
     Indication: DEPRESSION
     Dosage: DAILY
     Route: 048
     Dates: start: 2013
  4. SEROQUEL XR [Suspect]
     Active Substance: QUETIAPINE FUMARATE
     Indication: DEPRESSION
     Route: 048
     Dates: start: 20110224, end: 20170321
  5. SEROQUEL XR [Suspect]
     Active Substance: QUETIAPINE FUMARATE
     Indication: DEPRESSION
     Route: 048
     Dates: start: 2013
  6. TRUXAL [Suspect]
     Active Substance: CHLORPROTHIXENE
     Dosage: 50?150 MG
     Route: 065
     Dates: start: 20100415, end: 20150902
  7. ABILIFY [Concomitant]
     Active Substance: ARIPIPRAZOLE
     Indication: BIPOLAR DISORDER
     Route: 048
     Dates: start: 20150902, end: 20170727

REACTIONS (5)
  - Cerebrovascular accident [Unknown]
  - Cerebral thrombosis [Recovered/Resolved with Sequelae]
  - Dental caries [Unknown]
  - Hypoaesthesia [Unknown]
  - Axillary mass [Unknown]

NARRATIVE: CASE EVENT DATE: 201410
